FAERS Safety Report 23342412 (Version 2)
Quarter: 2024Q1

REPORT INFORMATION
  Report Type: Report from Study
  Country: JP (occurrence: JP)
  Receive Date: 20231227
  Receipt Date: 20240219
  Transmission Date: 20240410
  Serious: Yes (Death)
  Sender: FDA-Public Use
  Company Number: JP-BAYER-2023A183977

PATIENT
  Sex: Male

DRUGS (2)
  1. VITRAKVI [Suspect]
     Active Substance: LAROTRECTINIB
     Indication: NTRK gene fusion positive
     Dosage: 200MG/DAY
     Dates: start: 20230926, end: 202312
  2. VITRAKVI [Suspect]
     Active Substance: LAROTRECTINIB
     Indication: Neoplasm malignant

REACTIONS (1)
  - Malignant neoplasm progression [Fatal]
